FAERS Safety Report 26082367 (Version 1)
Quarter: 2025Q4

REPORT INFORMATION
  Report Type: Spontaneous
  Country: US (occurrence: None)
  Receive Date: 20251123
  Receipt Date: 20251123
  Transmission Date: 20260118
  Serious: Yes (Death)
  Sender: FDA-CTU
  Company Number: None

PATIENT
  Age: 90 Year
  Sex: Female
  Weight: 56.7 kg

DRUGS (11)
  1. SEROQUEL [Suspect]
     Active Substance: QUETIAPINE FUMARATE
     Indication: Feeling of relaxation
  2. VALSARTAN [Concomitant]
     Active Substance: VALSARTAN
  3. ATENOLOL [Concomitant]
     Active Substance: ATENOLOL
  4. ROSUVASTATIN [Concomitant]
     Active Substance: ROSUVASTATIN
  5. MEMANTINE [Concomitant]
     Active Substance: MEMANTINE
  6. neurin sl [Concomitant]
  7. EZETIMIBE [Concomitant]
     Active Substance: EZETIMIBE
  8. anlodipine [Concomitant]
  9. CLOPIDOGREL [Concomitant]
     Active Substance: CLOPIDOGREL BISULFATE
  10. isosordide [Concomitant]
  11. XARELTO [Concomitant]
     Active Substance: RIVAROXABAN

REACTIONS (4)
  - Unresponsive to stimuli [None]
  - Sedation [None]
  - Blood pressure abnormal [None]
  - Heart rate abnormal [None]
